FAERS Safety Report 8041620-5 (Version None)
Quarter: 2012Q1

REPORT INFORMATION
  Report Type: 
  Country: None (occurrence: None)
  Receive Date: 20120112
  Receipt Date: 20120110
  Transmission Date: 20120608
  Serious: Yes (Life-Threatening, Hospitalization)
  Sender: FDA-Public Use
  Company Number: US-JNJFOC-2010024214

PATIENT
  Age: 48 Year
  Sex: Male

DRUGS (5)
  1. WELLBUTRIN [Concomitant]
     Indication: BIPOLAR DISORDER
     Route: 065
  2. PROZAC [Concomitant]
     Indication: BIPOLAR DISORDER
     Route: 065
  3. MINOXIDIL [Suspect]
     Route: 048
  4. ABILIFY [Concomitant]
     Indication: BIPOLAR DISORDER
     Route: 065
  5. MINOXIDIL [Suspect]
     Indication: ALCOHOL USE
     Dosage: DAILY DOSE TEXT: ENTIRE 8 OZ. BOTTLE
     Route: 048

REACTIONS (3)
  - INCORRECT ROUTE OF DRUG ADMINISTRATION [None]
  - INTENTIONAL DRUG MISUSE [None]
  - TOXICITY TO VARIOUS AGENTS [None]
